FAERS Safety Report 14588151 (Version 1)
Quarter: 2018Q1

REPORT INFORMATION
  Report Type: Spontaneous
  Country: US (occurrence: US)
  Receive Date: 20180301
  Receipt Date: 20180301
  Transmission Date: 20180509
  Serious: No
  Sender: FDA-Public Use
  Company Number: US-PERRIGO-17US025727

PATIENT
  Age: 24 Year
  Sex: Male
  Weight: 122.45 kg

DRUGS (4)
  1. TESTOSTERONE CYPIONATE. [Suspect]
     Active Substance: TESTOSTERONE CYPIONATE
     Dosage: 80 MG, SINGLE
     Route: 030
     Dates: start: 20170628, end: 20170628
  2. TESTOSTERONE CYPIONATE. [Suspect]
     Active Substance: TESTOSTERONE CYPIONATE
     Dosage: 60 MG, SINGLE
     Route: 030
     Dates: start: 20170728, end: 20170728
  3. TESTOSTERONE CYPIONATE. [Suspect]
     Active Substance: TESTOSTERONE CYPIONATE
     Indication: GENDER DYSPHORIA
     Dosage: 50 MG, ONCE EVERY 14 DAYS
     Route: 030
     Dates: start: 201703, end: 201705
  4. TESTOSTERONE CYPIONATE. [Suspect]
     Active Substance: TESTOSTERONE CYPIONATE
     Dosage: 100 MG, ONCE EVERY 14 DAYS
     Route: 030
     Dates: start: 201705

REACTIONS (2)
  - Blood testosterone decreased [Unknown]
  - Off label use [Not Recovered/Not Resolved]

NARRATIVE: CASE EVENT DATE: 201703
